FAERS Safety Report 11127294 (Version 1)
Quarter: 2015Q2

REPORT INFORMATION
  Report Type: Spontaneous
  Country: US (occurrence: None)
  Receive Date: 20150519
  Receipt Date: 20150519
  Transmission Date: 20150821
  Serious: Yes (Other)
  Sender: FDA-Public Use
  Company Number: US2015023494

PATIENT
  Age: 63 Year
  Sex: Female

DRUGS (1)
  1. TUMS SMOOTHIES [Suspect]
     Active Substance: CALCIUM CARBONATE
     Indication: DYSPEPSIA
     Route: 048
     Dates: start: 20150203, end: 20150203

REACTIONS (18)
  - Dyspnoea [None]
  - Swelling face [None]
  - Oral mucosal blistering [None]
  - Rash generalised [None]
  - Dyspepsia [None]
  - Pruritus [None]
  - Oropharyngeal pain [None]
  - Odynophagia [None]
  - Oral mucosal exfoliation [None]
  - Eye swelling [None]
  - Hypersensitivity [None]
  - Myocardial infarction [None]
  - Throat irritation [None]
  - Pallor [None]
  - Oropharyngeal blistering [None]
  - Chest pain [None]
  - Urticaria [None]
  - Abdominal pain upper [None]
